FAERS Safety Report 15066911 (Version 1)
Quarter: 2018Q2

REPORT INFORMATION
  Report Type: Spontaneous
  Country: US (occurrence: US)
  Receive Date: 20180606
  Receipt Date: 20180606
  Transmission Date: 20180711
  Serious: Yes (Other)
  Sender: FDA-Public Use
  Company Number: None

PATIENT
  Sex: Female
  Weight: 114.75 kg

DRUGS (18)
  1. XELODA [Suspect]
     Active Substance: CAPECITABINE
     Indication: BREAST CANCER
     Route: 048
     Dates: start: 20180315
  2. PANTOPRAZOLE [Concomitant]
     Active Substance: PANTOPRAZOLE
  3. ROPINIROLE. [Concomitant]
     Active Substance: ROPINIROLE
  4. LORAZEPAM. [Concomitant]
     Active Substance: LORAZEPAM
  5. MORPHINE [Concomitant]
     Active Substance: MORPHINE
  6. ATORVASTATIN [Concomitant]
     Active Substance: ATORVASTATIN
  7. ZOFRAN [Concomitant]
     Active Substance: ONDANSETRON HYDROCHLORIDE
  8. PROMETHAZINE [Concomitant]
     Active Substance: PROMETHAZINE\PROMETHAZINE HYDROCHLORIDE
  9. DOCUSATE [Concomitant]
     Active Substance: DOCUSATE
  10. COMPRO [Concomitant]
     Active Substance: PROCHLORPERAZINE
  11. LETROZOLE. [Concomitant]
     Active Substance: LETROZOLE
  12. LOSARTAN. [Concomitant]
     Active Substance: LOSARTAN
  13. FOLIC ACID. [Concomitant]
     Active Substance: FOLIC ACID
  14. GABAPENTIN. [Concomitant]
     Active Substance: GABAPENTIN
  15. ZOMETA [Concomitant]
     Active Substance: ZOLEDRONIC ACID
  16. OXYCODONE [Concomitant]
     Active Substance: OXYCODONE
  17. CYCLOBENZAPRINE. [Concomitant]
     Active Substance: CYCLOBENZAPRINE
  18. LIDOCAINE. [Concomitant]
     Active Substance: LIDOCAINE

REACTIONS (3)
  - Neuropathy peripheral [None]
  - Nausea [None]
  - Vomiting [None]
